FAERS Safety Report 5994053-7 (Version None)
Quarter: 2008Q4

REPORT INFORMATION
  Report Type: 
  Country: None (occurrence: None)
  Receive Date: 20081212
  Receipt Date: 20080902
  Transmission Date: 20090506
  Serious: No
  Sender: FDA-Public Use
  Company Number: US-ABBOTT-08P-163-0473155-00

PATIENT
  Sex: Male
  Weight: 90.8 kg

DRUGS (13)
  1. HUMIRA [Suspect]
     Indication: CROHN'S DISEASE
     Route: 058
     Dates: start: 20080818, end: 20080818
  2. HUMIRA [Suspect]
     Indication: COLITIS ULCERATIVE
     Route: 058
  3. HUMIRA [Suspect]
     Route: 058
  4. SIMVASTATIN [Concomitant]
     Indication: BLOOD CHOLESTEROL INCREASED
     Route: 048
  5. NADOLOL [Concomitant]
     Indication: HEART RATE INCREASED
     Route: 048
     Dates: start: 20000101
  6. DIOVAN HCT [Concomitant]
     Indication: HYPERTENSION
     Dosage: 160/25MG DAILY
     Route: 048
  7. ACETYLSALICYLIC ACID SRT [Concomitant]
     Indication: CORONARY ARTERY BYPASS
     Route: 048
     Dates: start: 19960101
  8. PANTOPRAZOLE SODIUM [Concomitant]
     Indication: GASTROOESOPHAGEAL REFLUX DISEASE
     Route: 048
     Dates: start: 19980101
  9. MESALAMINE [Concomitant]
     Indication: CROHN'S DISEASE
     Route: 048
     Dates: start: 20080701
  10. DULOXETINE HYDROCHLORIDE [Concomitant]
     Indication: DEPRESSION
     Route: 048
     Dates: start: 20050101
  11. CLONAZEPAM [Concomitant]
     Indication: ANXIETY
     Route: 048
     Dates: start: 19980101
  12. ONDANSETRON [Concomitant]
     Indication: NAUSEA
     Route: 048
     Dates: start: 20080701
  13. PREDNISONE TAB [Concomitant]
     Indication: CROHN'S DISEASE
     Route: 048
     Dates: start: 20080601

REACTIONS (14)
  - ABDOMINAL DISTENSION [None]
  - ABDOMINAL PAIN [None]
  - COUGH [None]
  - CROHN'S DISEASE [None]
  - EAR PRURITUS [None]
  - HAEMOPTYSIS [None]
  - LOCALISED INFECTION [None]
  - NASOPHARYNGITIS [None]
  - POSTNASAL DRIP [None]
  - PRODUCTIVE COUGH [None]
  - RASH [None]
  - THROAT IRRITATION [None]
  - VOMITING [None]
  - WEIGHT INCREASED [None]
